FAERS Safety Report 19521701 (Version 12)
Quarter: 2022Q1

REPORT INFORMATION
  Report Type: Spontaneous
  Country: GB (occurrence: GB)
  Receive Date: 20210712
  Receipt Date: 20220303
  Transmission Date: 20220424
  Serious: Yes (Death, Hospitalization, Other)
  Sender: FDA-Public Use
  Company Number: GB-ROCHE-2680153

PATIENT
  Age: 55 Year
  Sex: Female

DRUGS (86)
  1. ABRAXANE [Suspect]
     Active Substance: PACLITAXEL
     Indication: Breast cancer
     Dosage: 300 MILLIGRAM
     Route: 042
     Dates: start: 20170816, end: 20170906
  2. ABRAXANE [Suspect]
     Active Substance: PACLITAXEL
     Dosage: 450 MILLIGRAM
     Route: 042
     Dates: start: 20170614, end: 20170614
  3. ABRAXANE [Suspect]
     Active Substance: PACLITAXEL
     Dosage: 375 MILLIGRAM
     Route: 042
     Dates: start: 20170705, end: 20170726
  4. ABRAXANE [Suspect]
     Active Substance: PACLITAXEL
     Dosage: 420 MILLIGRAM
     Route: 042
     Dates: start: 20170614, end: 20190327
  5. XELODA [Suspect]
     Active Substance: CAPECITABINE
     Indication: Breast cancer
     Dosage: 1300 MILLIGRAM
     Route: 048
     Dates: start: 20201020
  6. DOCETAXEL [Suspect]
     Active Substance: DOCETAXEL
     Indication: Breast cancer
     Dosage: 130 MILLIGRAM
     Route: 042
     Dates: start: 20170525, end: 20170525
  7. DOCETAXEL [Suspect]
     Active Substance: DOCETAXEL
     Indication: Breast cancer metastatic
     Dosage: 130 MILLIGRAM
     Route: 048
  8. ERIBULIN MESYLATE [Suspect]
     Active Substance: ERIBULIN MESYLATE
     Indication: Breast cancer
     Route: 042
     Dates: start: 20200611, end: 20200820
  9. ERIBULIN MESYLATE [Suspect]
     Active Substance: ERIBULIN MESYLATE
     Dosage: 240 MILLIGRAM
     Route: 048
     Dates: start: 20200919, end: 20201104
  10. NERATINIB [Suspect]
     Active Substance: NERATINIB
     Indication: Breast cancer
     Dosage: 240 MILLIGRAM
     Route: 048
     Dates: start: 20200919, end: 20201104
  11. NERATINIB [Suspect]
     Active Substance: NERATINIB
     Dosage: 375 MILLIGRAM
     Route: 042
     Dates: start: 20170705, end: 20170726
  12. PERTUZUMAB [Suspect]
     Active Substance: PERTUZUMAB
     Indication: Breast cancer
     Dosage: 840 MILLIGRAM
     Route: 042
     Dates: start: 20170524, end: 20170524
  13. PERTUZUMAB [Suspect]
     Active Substance: PERTUZUMAB
     Dosage: 420 MILLIGRAM
     Route: 042
     Dates: start: 20170614, end: 20190327
  14. PERTUZUMAB [Suspect]
     Active Substance: PERTUZUMAB
     Dosage: 375 MILLIGRAM
     Route: 042
     Dates: start: 20170705, end: 20170726
  15. PERTUZUMAB [Suspect]
     Active Substance: PERTUZUMAB
     Dosage: 300 MILLIGRAM
     Route: 042
     Dates: start: 20170816, end: 20170906
  16. PERTUZUMAB [Suspect]
     Active Substance: PERTUZUMAB
     Dosage: 300 MILLIGRAM
     Route: 042
     Dates: start: 20170524, end: 20170524
  17. TRASTUZUMAB [Suspect]
     Active Substance: TRASTUZUMAB
     Indication: Breast cancer
     Dosage: 400 MILLIGRAM
     Route: 042
     Dates: start: 20170614, end: 20170614
  18. TRASTUZUMAB [Suspect]
     Active Substance: TRASTUZUMAB
     Dosage: 525 MILLIGRAM
     Route: 042
     Dates: start: 20170524, end: 20170524
  19. TRASTUZUMAB [Suspect]
     Active Substance: TRASTUZUMAB
     Dosage: 378 MILLIGRAM
     Route: 042
     Dates: start: 20180516, end: 20190327
  20. ADO-TRASTUZUMAB EMTANSINE [Suspect]
     Active Substance: ADO-TRASTUZUMAB EMTANSINE
     Indication: Breast cancer
     Dosage: 200 MILLIGRAM
     Route: 042
     Dates: start: 20190627, end: 20190718
  21. ADO-TRASTUZUMAB EMTANSINE [Suspect]
     Active Substance: ADO-TRASTUZUMAB EMTANSINE
     Dosage: 160 MILLIGRAM
     Route: 042
     Dates: start: 20190829, end: 20200326
  22. ADO-TRASTUZUMAB EMTANSINE [Suspect]
     Active Substance: ADO-TRASTUZUMAB EMTANSINE
     Dosage: 240 MILLIGRAM
     Route: 042
     Dates: start: 20190427, end: 20190606
  23. ADO-TRASTUZUMAB EMTANSINE [Suspect]
     Active Substance: ADO-TRASTUZUMAB EMTANSINE
     Dosage: 200 MILLIGRAM
     Route: 042
     Dates: start: 20190627, end: 20190718
  24. ADO-TRASTUZUMAB EMTANSINE [Suspect]
     Active Substance: ADO-TRASTUZUMAB EMTANSINE
     Dosage: 160 MILLIGRAM
     Route: 042
     Dates: start: 20190829, end: 20200326
  25. CAPECITABINE [Suspect]
     Active Substance: CAPECITABINE
     Indication: Breast cancer metastatic
     Route: 048
     Dates: start: 20200525, end: 20200525
  26. CAPECITABINE [Suspect]
     Active Substance: CAPECITABINE
     Indication: Breast cancer
     Route: 048
     Dates: start: 20201020
  27. CAPECITABINE [Suspect]
     Active Substance: CAPECITABINE
     Dosage: 6.1905 MILLIGRAM
     Route: 042
     Dates: start: 20170525, end: 20170525
  28. AMITRIPTYLINE [Concomitant]
     Active Substance: AMITRIPTYLINE
     Indication: Depressed mood
     Dosage: 1660 MILLIGRAM
     Route: 048
     Dates: start: 20190827, end: 20190919
  29. AMITRIPTYLINE [Concomitant]
     Active Substance: AMITRIPTYLINE
     Route: 048
     Dates: start: 20190827, end: 20190919
  30. AMITRIPTYLINE [Concomitant]
     Active Substance: AMITRIPTYLINE
     Route: 042
     Dates: start: 20201028, end: 20201104
  31. AZTREONAM [Concomitant]
     Active Substance: AZTREONAM
     Indication: Product contamination microbial
     Route: 042
     Dates: start: 20201028, end: 20201104
  32. CALCIUM\CHOLECALCIFEROL [Concomitant]
     Active Substance: CALCIUM\CHOLECALCIFEROL
     Indication: Product used for unknown indication
     Dosage: 3 DOSAGE FORMS
     Route: 048
     Dates: start: 20170525, end: 20210205
  33. CEFUROXIME [Concomitant]
     Active Substance: CEFUROXIME
     Indication: Product contamination microbial
     Route: 048
     Dates: start: 20201028
  34. CEFUROXIME [Concomitant]
     Active Substance: CEFUROXIME
     Route: 048
     Dates: start: 20200925, end: 20201019
  35. CEFUROXIME [Concomitant]
     Active Substance: CEFUROXIME
     Route: 048
     Dates: start: 20190303, end: 2019
  36. CETIRIZINE [Concomitant]
     Active Substance: CETIRIZINE HYDROCHLORIDE
     Indication: Urticaria papular
     Route: 048
     Dates: start: 20190313, end: 2019
  37. CETIRIZINE [Concomitant]
     Active Substance: CETIRIZINE HYDROCHLORIDE
     Dosage: 10 MILLILITER, QID
     Route: 061
     Dates: start: 20170525, end: 2017
  38. CHLORHEXIDINE GLUCONATE [Concomitant]
     Active Substance: CHLORHEXIDINE GLUCONATE
     Indication: Product used for unknown indication
     Route: 061
     Dates: start: 20170525, end: 2017
  39. CHLORHEXIDINE GLUCONATE [Concomitant]
     Active Substance: CHLORHEXIDINE GLUCONATE
     Dosage: 4 MILLIGRAM, QID
     Route: 048
     Dates: start: 20170526, end: 20170530
  40. CHLORPHENIRAMINE [Concomitant]
     Active Substance: CHLORPHENIRAMINE
     Indication: Abdominal pain upper
     Route: 048
     Dates: start: 20170526, end: 20170530
  41. CHLORPHENIRAMINE [Concomitant]
     Active Substance: CHLORPHENIRAMINE
     Route: 048
     Dates: start: 20200707, end: 20200707
  42. CIPROFLOXACIN [Concomitant]
     Active Substance: CIPROFLOXACIN
     Indication: Abdominal pain upper
     Route: 065
     Dates: start: 20200707, end: 202007
  43. CIPROFLOXACIN [Concomitant]
     Active Substance: CIPROFLOXACIN
     Indication: Cholecystitis acute
     Route: 065
     Dates: start: 20200909, end: 20200916
  44. CIPROFLOXACIN [Concomitant]
     Active Substance: CIPROFLOXACIN
     Dosage: 0.05 PERCENT, BID
     Route: 061
     Dates: start: 20170210, end: 201708
  45. CLOBETASOL PROPIONATE [Concomitant]
     Active Substance: CLOBETASOL PROPIONATE
     Indication: Product used for unknown indication
     Route: 061
     Dates: start: 20170210, end: 201708
  46. CEFTRIAXONE [Concomitant]
     Active Substance: CEFTRIAXONE
     Indication: Product contamination microbial
     Route: 048
     Dates: start: 20200928, end: 20201012
  47. CEFTRIAXONE [Concomitant]
     Active Substance: CEFTRIAXONE
     Route: 042
  48. CLOBETASOL [Concomitant]
     Active Substance: CLOBETASOL
     Indication: Product used for unknown indication
     Route: 065
  49. CLOBETASOL [Concomitant]
     Active Substance: CLOBETASOL
     Dosage: 10 MILLIGRAM, TID
     Route: 048
     Dates: start: 20170523, end: 20170526
  50. DOMPERIDONE [Concomitant]
     Active Substance: DOMPERIDONE
     Indication: Rhinitis
     Route: 048
     Dates: start: 20170523, end: 20170526
  51. DOMPERIDONE [Concomitant]
     Active Substance: DOMPERIDONE
     Route: 048
     Dates: start: 201905, end: 201905
  52. FUSIDIC ACID [Concomitant]
     Active Substance: FUSIDIC ACID
     Indication: Rhinitis
     Route: 065
     Dates: start: 201905, end: 201905
  53. CYCLOSPORINE [Concomitant]
     Active Substance: CYCLOSPORINE
     Indication: Blepharitis
     Route: 047
     Dates: start: 201708, end: 2018
  54. LANSOPRAZOLE [Concomitant]
     Active Substance: LANSOPRAZOLE
     Indication: Gastritis
     Route: 048
     Dates: start: 20190730, end: 202010
  55. LANSOPRAZOLE [Concomitant]
     Active Substance: LANSOPRAZOLE
     Route: 048
     Dates: start: 20170613, end: 20201113
  56. LOPERAMIDE [Concomitant]
     Active Substance: LOPERAMIDE
     Indication: Product used for unknown indication
     Route: 048
     Dates: start: 20170613, end: 20201113
  57. LOPERAMIDE [Concomitant]
     Active Substance: LOPERAMIDE
     Dosage: 400 MILLIGRAM
     Route: 048
     Dates: start: 20201116, end: 202011
  58. METRONIDAZOLE [Concomitant]
     Active Substance: METRONIDAZOLE
     Indication: Duodenal ulcer
     Route: 065
     Dates: start: 20200909, end: 20200914
  59. METRONIDAZOLE [Concomitant]
     Active Substance: METRONIDAZOLE
     Indication: Cholecystitis acute
     Route: 048
     Dates: start: 20201116, end: 202011
  60. METRONIDAZOLE [Concomitant]
     Active Substance: METRONIDAZOLE
     Indication: Abdominal pain upper
     Route: 065
     Dates: start: 20200630, end: 20200709
  61. METRONIDAZOLE [Concomitant]
     Active Substance: METRONIDAZOLE
     Route: 042
     Dates: start: 20200925, end: 20200927
  62. METRONIDAZOLE [Concomitant]
     Active Substance: METRONIDAZOLE
     Route: 048
     Dates: start: 20170525, end: 20210205
  63. ACETAMINOPHEN [Concomitant]
     Active Substance: ACETAMINOPHEN
     Indication: Product used for unknown indication
     Route: 048
     Dates: start: 20170525, end: 20210205
  64. SORBINICATE [Concomitant]
     Active Substance: SORBINICATE
     Indication: Biliary sepsis
     Dosage: 1 SPRAY
     Route: 060
     Dates: start: 20170526, end: 2017
  65. SORBINICATE [Concomitant]
     Active Substance: SORBINICATE
     Dosage: 1 SPRAY
     Route: 042
     Dates: start: 20200502, end: 20200505
  66. POTASSIUM BICARBONATE\POTASSIUM CHLORIDE [Concomitant]
     Active Substance: POTASSIUM BICARBONATE\POTASSIUM CHLORIDE
     Indication: Product used for unknown indication
     Route: 048
     Dates: start: 20170525, end: 20170529
  67. TEICOPLANIN [Concomitant]
     Active Substance: TEICOPLANIN
     Indication: Biliary sepsis
     Route: 042
     Dates: start: 20200502, end: 20200515
  68. TEICOPLANIN [Concomitant]
     Active Substance: TEICOPLANIN
     Indication: Product contamination microbial
     Route: 042
     Dates: start: 20201028, end: 20201104
  69. TEICOPLANIN [Concomitant]
     Active Substance: TEICOPLANIN
     Route: 042
     Dates: start: 20200925, end: 20200925
  70. TINZAPARIN [Concomitant]
     Active Substance: TINZAPARIN
     Indication: Product used for unknown indication
     Route: 058
     Dates: start: 20170713, end: 20190723
  71. TINZAPARIN [Concomitant]
     Active Substance: TINZAPARIN
     Route: 058
     Dates: start: 20190916, end: 20191008
  72. TINZAPARIN [Concomitant]
     Active Substance: TINZAPARIN
     Dosage: 4 GRAM
     Route: 048
     Dates: start: 20201111, end: 20201112
  73. TRANEXAMIC ACID [Concomitant]
     Active Substance: TRANEXAMIC ACID
     Indication: Duodenal ulcer
     Route: 065
     Dates: start: 20190722, end: 201907
  74. TRANEXAMIC ACID [Concomitant]
     Active Substance: TRANEXAMIC ACID
     Indication: Coagulopathy
     Dosage: 1 GRAM, TID
     Route: 048
     Dates: start: 20201112, end: 20201113
  75. TRANEXAMIC ACID [Concomitant]
     Active Substance: TRANEXAMIC ACID
     Dosage: UNCHECKED ONGOING 1 G (GRAM) TABLET PO (ORAL) TID (THREE
     Route: 048
     Dates: start: 20201111, end: 20201112
  76. TRANEXAMIC ACID [Concomitant]
     Active Substance: TRANEXAMIC ACID
     Route: 048
     Dates: start: 20201104
  77. VANCOMYCIN [Concomitant]
     Active Substance: VANCOMYCIN
     Indication: Clostridium difficile infection
     Route: 048
     Dates: start: 20201104, end: 20201113
  78. VANCOMYCIN [Concomitant]
     Active Substance: VANCOMYCIN
     Dosage: CAPSULE PO (ORAL) QID (FOUR TIMES A DAY)
     Route: 048
     Dates: end: 20201113
  79. VANCOMYCIN [Concomitant]
     Active Substance: VANCOMYCIN
     Route: 048
     Dates: start: 20201030, end: 20201104
  80. VANCOMYCIN [Concomitant]
     Active Substance: VANCOMYCIN
     Dosage: 4 MILLIGRAM
     Route: 048
     Dates: start: 20170525, end: 20201022
  81. ZOLEDRONIC ACID [Concomitant]
     Active Substance: ZOLEDRONIC ACID
     Indication: Product used for unknown indication
     Route: 042
     Dates: start: 20170525, end: 20201022
  82. DOCETAXEL [Concomitant]
     Active Substance: DOCETAXEL
     Indication: Depressed mood
     Dosage: 5 MILLIGRAM
     Route: 048
     Dates: start: 20190827, end: 20190919
  83. CALCIUM CARBONATE [Concomitant]
     Active Substance: CALCIUM CARBONATE
     Indication: Product used for unknown indication
     Route: 065
  84. CHOLECALCIFEROL [Concomitant]
     Active Substance: CHOLECALCIFEROL
     Indication: Product contamination microbial
     Dosage: 250 MILLIGRAM BID
     Route: 048
     Dates: start: 20200928, end: 20201012
  85. POTASSIUM CHLORIDE [Concomitant]
     Active Substance: POTASSIUM CHLORIDE
     Indication: Product used for unknown indication
     Route: 065
  86. CYCLOSPORINE [Concomitant]
     Active Substance: CYCLOSPORINE
     Indication: Gastritis
     Dosage: 30 MILLIGRAM, QD
     Route: 048
     Dates: start: 20190730, end: 202010

REACTIONS (4)
  - Breast cancer [Fatal]
  - Abdominal pain [Not Recovered/Not Resolved]
  - Pyrexia [Recovered/Resolved]
  - Pyrexia [Not Recovered/Not Resolved]

NARRATIVE: CASE EVENT DATE: 20200724
